FAERS Safety Report 23709742 (Version 4)
Quarter: 2024Q3

REPORT INFORMATION
  Report Type: Report from Study
  Country: US (occurrence: US)
  Receive Date: 20240404
  Receipt Date: 20240913
  Transmission Date: 20241017
  Serious: Yes (Other)
  Sender: ABBVIE
  Company Number: US-ABBVIE-5702641

PATIENT
  Age: 35 Year
  Sex: Female
  Weight: 71 kg

DRUGS (2)
  1. ORILISSA [Suspect]
     Active Substance: ELAGOLIX SODIUM
     Indication: Endometriosis
     Route: 048
     Dates: start: 2021, end: 20231101
  2. OMEPRAZOLE [Concomitant]
     Active Substance: OMEPRAZOLE
     Indication: Gastrooesophageal reflux disease
     Dates: start: 20230601, end: 20231227

REACTIONS (10)
  - Postoperative adhesion [Unknown]
  - Maternal exposure during pregnancy [Unknown]
  - Placenta praevia [Recovered/Resolved with Sequelae]
  - Polyhydramnios [Unknown]
  - Von Willebrand^s disease [Unknown]
  - Haemorrhage in pregnancy [Unknown]
  - Hypertension [Unknown]
  - Gestational diabetes [Recovered/Resolved]
  - Spontaneous haemorrhage [Not Recovered/Not Resolved]
  - Live birth [Recovered/Resolved]

NARRATIVE: CASE EVENT DATE: 20240124
